FAERS Safety Report 25895016 (Version 1)
Quarter: 2025Q4

REPORT INFORMATION
  Report Type: Spontaneous
  Country: EU (occurrence: EU)
  Receive Date: 20251008
  Receipt Date: 20251008
  Transmission Date: 20260117
  Serious: Yes (Hospitalization)
  Sender: MYLAN
  Company Number: None

PATIENT
  Age: 59 Year
  Sex: Male
  Weight: 80 kg

DRUGS (16)
  1. DABIGATRAN [Suspect]
     Active Substance: DABIGATRAN
     Indication: Atrial fibrillation
     Dosage: 150 MILLIGRAM, BID (12 HR)
     Dates: start: 2025, end: 20250831
  2. DABIGATRAN [Suspect]
     Active Substance: DABIGATRAN
     Dosage: 150 MILLIGRAM, BID (12 HR)
     Route: 048
     Dates: start: 2025, end: 20250831
  3. DABIGATRAN [Suspect]
     Active Substance: DABIGATRAN
     Dosage: 150 MILLIGRAM, BID (12 HR)
     Route: 048
     Dates: start: 2025, end: 20250831
  4. DABIGATRAN [Suspect]
     Active Substance: DABIGATRAN
     Dosage: 150 MILLIGRAM, BID (12 HR)
     Dates: start: 2025, end: 20250831
  5. FLECAINIDE ACETATE [Concomitant]
     Active Substance: FLECAINIDE ACETATE
     Indication: Atrial fibrillation
     Dosage: 100 MILLIGRAM, QD
  6. FLECAINIDE ACETATE [Concomitant]
     Active Substance: FLECAINIDE ACETATE
     Dosage: 100 MILLIGRAM, QD
     Route: 048
  7. FLECAINIDE ACETATE [Concomitant]
     Active Substance: FLECAINIDE ACETATE
     Dosage: 100 MILLIGRAM, QD
     Route: 048
  8. FLECAINIDE ACETATE [Concomitant]
     Active Substance: FLECAINIDE ACETATE
     Dosage: 100 MILLIGRAM, QD
  9. BISOPROLOL [Concomitant]
     Active Substance: BISOPROLOL
     Indication: Atrial fibrillation
     Dosage: 1.25 MILLIGRAM, QD
  10. BISOPROLOL [Concomitant]
     Active Substance: BISOPROLOL
     Dosage: 1.25 MILLIGRAM, QD
     Route: 048
  11. BISOPROLOL [Concomitant]
     Active Substance: BISOPROLOL
     Dosage: 1.25 MILLIGRAM, QD
     Route: 048
  12. BISOPROLOL [Concomitant]
     Active Substance: BISOPROLOL
     Dosage: 1.25 MILLIGRAM, QD
  13. EZETIMIBE\ROSUVASTATIN [Concomitant]
     Active Substance: EZETIMIBE\ROSUVASTATIN
     Indication: Cardiovascular event prophylaxis
     Dosage: 1 DOSAGE FORM, QD
  14. EZETIMIBE\ROSUVASTATIN [Concomitant]
     Active Substance: EZETIMIBE\ROSUVASTATIN
     Dosage: 1 DOSAGE FORM, QD
     Route: 048
  15. EZETIMIBE\ROSUVASTATIN [Concomitant]
     Active Substance: EZETIMIBE\ROSUVASTATIN
     Dosage: 1 DOSAGE FORM, QD
     Route: 048
  16. EZETIMIBE\ROSUVASTATIN [Concomitant]
     Active Substance: EZETIMIBE\ROSUVASTATIN
     Dosage: 1 DOSAGE FORM, QD

REACTIONS (2)
  - Duodenal ulcer perforation [Recovering/Resolving]
  - Shock haemorrhagic [Recovered/Resolved]

NARRATIVE: CASE EVENT DATE: 20250831
